FAERS Safety Report 9904543 (Version 1)
Quarter: 2014Q1

REPORT INFORMATION
  Report Type: Spontaneous
  Country: FR (occurrence: FR)
  Receive Date: 20140218
  Receipt Date: 20140218
  Transmission Date: 20141002
  Serious: Yes (Hospitalization, Other)
  Sender: FDA-Public Use
  Company Number: 2014SP000841

PATIENT
  Age: 57 Year
  Sex: Male

DRUGS (19)
  1. VANCOMYCIN [Suspect]
     Indication: PRODUCT USED FOR UNKNOWN INDICATION
  2. CEFEPIME [Suspect]
     Indication: PRODUCT USED FOR UNKNOWN INDICATION
     Route: 042
     Dates: start: 20131224, end: 20131229
  3. TAZOCILLINE [Suspect]
     Indication: PRODUCT USED FOR UNKNOWN INDICATION
     Route: 042
     Dates: start: 20131230, end: 20140103
  4. VALACICLOVIR [Suspect]
     Indication: PRODUCT USED FOR UNKNOWN INDICATION
     Route: 048
     Dates: start: 20131203, end: 20140112
  5. HEPARINE CHOAY [Suspect]
     Indication: PRODUCT USED FOR UNKNOWN INDICATION
  6. AMIKACIN [Suspect]
     Indication: PRODUCT USED FOR UNKNOWN INDICATION
  7. CUBICIN [Suspect]
     Indication: PRODUCT USED FOR UNKNOWN INDICATION
  8. NOXAFIL [Suspect]
     Indication: PRODUCT USED FOR UNKNOWN INDICATION
     Route: 048
     Dates: start: 20131205, end: 20140109
  9. ESOMEPRAZOLE [Suspect]
     Indication: PRODUCT USED FOR UNKNOWN INDICATION
     Route: 048
     Dates: start: 20131205, end: 20140111
  10. CICLOSPORIN [Suspect]
     Indication: PRODUCT USED FOR UNKNOWN INDICATION
  11. AMOXICILLIN TRIHYDRATE W/CLAVULANATE POTASS. [Concomitant]
     Indication: COLITIS
  12. METRONIDAZOLE [Concomitant]
  13. OROKEN [Concomitant]
  14. SOLUMEDROL [Concomitant]
  15. ATGAM [Concomitant]
  16. DOMPERIDONE [Concomitant]
  17. IMIPENEM [Concomitant]
  18. CILASTATIN [Concomitant]
     Dates: start: 20131206, end: 20131220
  19. OFLOXACIN [Concomitant]

REACTIONS (3)
  - Skin mass [Unknown]
  - Myalgia [Unknown]
  - Generalised oedema [Unknown]
